FAERS Safety Report 9679151 (Version 2)
Quarter: 2013Q4

REPORT INFORMATION
  Report Type: Report from Study
  Country: FR (occurrence: FR)
  Receive Date: 20131108
  Receipt Date: 20131108
  Transmission Date: 20140711
  Serious: Yes (Death, Other)
  Sender: FDA-Public Use
  Company Number: FR-TEVA-377904USA

PATIENT
  Sex: Male
  Weight: 58.5 kg

DRUGS (23)
  1. BENDAMUSTINE [Suspect]
     Indication: MANTLE CELL LYMPHOMA
     Route: 041
     Dates: start: 20120622
  2. BENDAMUSTINE [Suspect]
     Route: 042
     Dates: start: 20120623
  3. BENDAMUSTINE [Suspect]
     Route: 042
     Dates: start: 20120720
  4. BENDAMUSTINE [Suspect]
     Route: 041
     Dates: start: 20120821, end: 20120822
  5. VELCADE [Suspect]
     Indication: MANTLE CELL LYMPHOMA
     Route: 058
     Dates: start: 20120622
  6. VELCADE [Suspect]
     Route: 042
     Dates: start: 20120622, end: 20120629
  7. VELCADE [Suspect]
     Route: 042
     Dates: start: 20120702
  8. VELCADE [Suspect]
     Route: 042
     Dates: start: 20120720
  9. VELCADE [Suspect]
     Route: 058
     Dates: start: 20120831
  10. MABTHERA [Suspect]
     Indication: MANTLE CELL LYMPHOMA
     Route: 042
     Dates: start: 20120623
  11. MABTHERA [Suspect]
     Route: 042
     Dates: start: 20120720, end: 20120720
  12. MABTHERA [Suspect]
     Route: 041
  13. DEXAMETHASONE [Suspect]
     Indication: MANTLE CELL LYMPHOMA
     Route: 041
     Dates: start: 20120623, end: 20120623
  14. POLARAMINE [Concomitant]
     Dates: start: 20120622
  15. DAFALGAN [Concomitant]
     Dates: start: 20120622
  16. SOLU-MEDROL [Concomitant]
     Indication: PRODUCT USED FOR UNKNOWN INDICATION
  17. VALACICLOVIR [Concomitant]
     Indication: PROPHYLAXIS
     Route: 048
     Dates: start: 20120622
  18. INEGY [Concomitant]
     Indication: PROPHYLAXIS
     Route: 048
     Dates: start: 20030911
  19. CLOPIDOGREL [Concomitant]
     Indication: PROPHYLAXIS
     Route: 048
     Dates: start: 20030911
  20. KARDEGIC [Concomitant]
     Indication: PROPHYLAXIS
     Route: 048
     Dates: start: 20030911
  21. BISOPROLOL [Concomitant]
     Indication: PROPHYLAXIS
     Route: 048
     Dates: start: 200303
  22. ZOPICLONE [Concomitant]
     Indication: INSOMNIA
     Route: 048
     Dates: start: 200309
  23. BISOPROLOL HEMIFUMARATE [Concomitant]
     Indication: PROPHYLAXIS
     Dates: start: 200303

REACTIONS (3)
  - Encephalopathy [Fatal]
  - Accidental overdose [Recovered/Resolved]
  - Drug prescribing error [Recovered/Resolved]
